FAERS Safety Report 4559810-2 (Version None)
Quarter: 2005Q1

REPORT INFORMATION
  Report Type: 
  Country: None (occurrence: None)
  Receive Date: 20050124
  Receipt Date: 20030605
  Transmission Date: 20050727
  Serious: Yes (Hospitalization, Disabling, Other)
  Sender: FDA-Public Use
  Company Number: US-MERCK-0306USA00786

PATIENT
  Age: 50 Year
  Sex: Female
  Weight: 129 kg

DRUGS (2)
  1. VIOXX [Suspect]
     Indication: PAIN
     Route: 048
  2. VIOXX [Suspect]
     Route: 048
     Dates: start: 20000517

REACTIONS (26)
  - ADVERSE EVENT [None]
  - ANAEMIA [None]
  - ANGIONEUROTIC OEDEMA [None]
  - BRONCHITIS [None]
  - CHEST PAIN [None]
  - CONSTIPATION [None]
  - DEEP VEIN THROMBOSIS [None]
  - DEPRESSION [None]
  - DIABETES MELLITUS NON-INSULIN-DEPENDENT [None]
  - DIVERTICULUM [None]
  - DYSPNOEA [None]
  - FATIGUE [None]
  - GASTRIC OPERATION [None]
  - GASTRIC OUTLET OBSTRUCTION [None]
  - HYPERTENSION [None]
  - NEUROPATHY PERIPHERAL [None]
  - NON-CARDIAC CHEST PAIN [None]
  - OEDEMA PERIPHERAL [None]
  - OESOPHAGEAL OBSTRUCTION [None]
  - OSTEOARTHRITIS [None]
  - PEPTIC ULCER [None]
  - RESTRICTIVE PULMONARY DISEASE [None]
  - STRESS INCONTINENCE [None]
  - TENDONITIS [None]
  - URINARY TRACT INFECTION [None]
  - VENTRICULAR DYSFUNCTION [None]
